FAERS Safety Report 8874661 (Version 1)
Quarter: 2012Q4

REPORT INFORMATION
  Report Type: Report from Study
  Country: CH (occurrence: CH)
  Receive Date: 20121031
  Receipt Date: 20121031
  Transmission Date: 20130627
  Serious: Yes (Hospitalization)
  Sender: FDA-Public Use
  Company Number: CH-BAYER-2012-110992

PATIENT
  Age: 71 Year
  Sex: Male

DRUGS (6)
  1. SORAFENIB (RAF KINASE INHIBITOR) [Suspect]
     Indication: CARCINOMA HEPATOCELLULAR
     Dosage: Daily dose 800 mg
     Route: 048
     Dates: start: 20120707, end: 20121009
  2. METOPROLOL [Concomitant]
     Dosage: Daily dose 25 mg
     Route: 048
  3. LISINOPRIL COMP [Concomitant]
     Dosage: Daily dose 10 mg
     Route: 048
  4. METFORMIN [Concomitant]
     Dosage: Daily dose 3 g
     Route: 048
  5. SITAGLIPTIN [Concomitant]
     Dosage: Daily dose 100 mg
     Route: 048
  6. NATEGLINIDE [Concomitant]
     Dosage: Daily dose 180 mg
     Route: 048

REACTIONS (1)
  - Soft tissue necrosis [Recovered/Resolved with Sequelae]
